FAERS Safety Report 17415585 (Version 1)
Quarter: 2020Q1

REPORT INFORMATION
  Report Type: Report from Study
  Country: CA (occurrence: CA)
  Receive Date: 20200213
  Receipt Date: 20200213
  Transmission Date: 20200409
  Serious: Yes (Other)
  Sender: FDA-Public Use
  Company Number: CA-GLAXOSMITHKLINE-CA2020AMR023307

PATIENT
  Sex: Female

DRUGS (1)
  1. MEPOLIZUMAB [Suspect]
     Active Substance: MEPOLIZUMAB
     Indication: ASTHMA
     Dosage: 100 MG, Z (MONTHLY)
     Route: 042
     Dates: start: 20160906

REACTIONS (9)
  - Dysstasia [Unknown]
  - Balance disorder [Unknown]
  - Hypotension [Unknown]
  - Fall [Unknown]
  - Loss of consciousness [Unknown]
  - Epilepsy [Unknown]
  - Central nervous system lesion [Unknown]
  - Stress [Unknown]
  - Seizure [Unknown]
